FAERS Safety Report 6692542-3 (Version None)
Quarter: 2010Q2

REPORT INFORMATION
  Report Type: 
  Country: None (occurrence: None)
  Receive Date: 20100422
  Receipt Date: 20100412
  Transmission Date: 20101027
  Serious: Yes (Hospitalization)
  Sender: FDA-Public Use
  Company Number: DE-ELI_LILLY_AND_COMPANY-DE201004003058

PATIENT
  Sex: Male
  Weight: 76 kg

DRUGS (7)
  1. PEMETREXED [Suspect]
     Indication: BREAST CANCER
     Dosage: 990 MG, UNK
     Route: 042
     Dates: start: 20100331
  2. CISPLATIN [Suspect]
     Indication: BREAST CANCER
     Dosage: 150 MG, UNK
     Route: 042
     Dates: start: 20100331
  3. ALIZAPRIDE [Concomitant]
     Dosage: 150 MG, UNK
     Route: 048
     Dates: start: 20100331, end: 20100404
  4. ZOFRAN [Concomitant]
     Route: 048
     Dates: start: 20100331, end: 20100404
  5. FORTECORTIN [Concomitant]
     Dosage: 8 MG, UNK
     Dates: start: 20100331, end: 20100403
  6. FOLIC ACID [Concomitant]
     Dosage: 0.4 MG, UNK
     Route: 048
     Dates: start: 20100331, end: 20100403
  7. VIT B12 [Concomitant]
     Dosage: 100 UG, UNK
     Route: 042
     Dates: start: 20100406

REACTIONS (1)
  - DYSPNOEA [None]
